FAERS Safety Report 7546165-4 (Version None)
Quarter: 2011Q2

REPORT INFORMATION
  Report Type: 
  Country: None (occurrence: None)
  Receive Date: 20110614
  Receipt Date: 20040116
  Transmission Date: 20111010
  Serious: Yes (Hospitalization)
  Sender: FDA-Public Use
  Company Number: PHFR2003GB03811

PATIENT
  Sex: Male

DRUGS (5)
  1. ZOPICLONE [Concomitant]
     Dosage: 7.5MG, NOCTE
     Route: 048
  2. LACTULOSE [Concomitant]
     Route: 065
  3. BECOTIDE [Concomitant]
     Route: 065
  4. CLOZAPINE [Suspect]
     Indication: SCHIZOPHRENIA
     Dosage: 75 MG, BID
     Route: 048
     Dates: start: 19980701
  5. SENNA-MINT WAF [Concomitant]
     Route: 065

REACTIONS (4)
  - FEMUR FRACTURE [None]
  - FALL [None]
  - HIP FRACTURE [None]
  - MOBILITY DECREASED [None]
